FAERS Safety Report 5820936-4 (Version None)
Quarter: 2008Q3

REPORT INFORMATION
  Report Type: 
  Country: None (occurrence: None)
  Receive Date: 20080724
  Receipt Date: 20080715
  Transmission Date: 20090109
  Serious: Yes (Other)
  Sender: FDA-Public Use
  Company Number: US-BAYER-200827931NA

PATIENT
  Age: 26 Year
  Sex: Female

DRUGS (1)
  1. MIRENA [Suspect]
     Indication: CONTRACEPTION
     Route: 015
     Dates: start: 20070430, end: 20080624

REACTIONS (3)
  - CERVICAL DYSPLASIA [None]
  - INCISIONAL HERNIA REPAIR [None]
  - INTRA-UTERINE CONTRACEPTIVE DEVICE EXPELLED [None]
